FAERS Safety Report 14681920 (Version 6)
Quarter: 2019Q1

REPORT INFORMATION
  Report Type: Spontaneous
  Country: US (occurrence: US)
  Receive Date: 20180326
  Receipt Date: 20190329
  Transmission Date: 20190417
  Serious: Yes (Hospitalization, Other)
  Sender: FDA-Public Use
  Company Number: US-ACTELION-A-NJ2018-169434

PATIENT
  Sex: Female
  Weight: 101.13 kg

DRUGS (2)
  1. OPSUMIT [Suspect]
     Active Substance: MACITENTAN
     Indication: PULMONARY ARTERIAL HYPERTENSION
     Dosage: 10 MG, UNK
     Route: 048
  2. COUMADIN [Concomitant]
     Active Substance: WARFARIN SODIUM

REACTIONS (7)
  - Fall [Unknown]
  - Hospitalisation [Unknown]
  - Malaise [Unknown]
  - Cardiac operation [Unknown]
  - Back injury [Unknown]
  - Quality of life decreased [Unknown]
  - Asthenia [Unknown]
